FAERS Safety Report 4336341-6 (Version None)
Quarter: 2004Q2

REPORT INFORMATION
  Report Type: 
  Country: None (occurrence: None)
  Receive Date: 20040409
  Receipt Date: 20040409
  Transmission Date: 20050107
  Serious: Yes (Hospitalization)
  Sender: FDA-Public Use
  Company Number: None

PATIENT
  Sex: Female
  Weight: 87 kg

DRUGS (5)
  1. ARSENIC TRISENOX [Suspect]
     Indication: METASTATIC MALIGNANT MELANOMA
     Dosage: 21 MG Q D X 5 IV Q MON AND THURS IV
     Route: 042
     Dates: start: 20040315, end: 20040318
  2. ARSENIC TRISENOX [Suspect]
     Indication: METASTATIC MALIGNANT MELANOMA
     Dosage: 21 MG Q D X 5 IV Q MON AND THURS IV
     Route: 042
     Dates: start: 20040322, end: 20040405
  3. ASCORBIC ACID [Suspect]
     Indication: METASTATIC MALIGNANT MELANOMA
     Dosage: 1000 MG QD X 5 DAYS IV 1000 MG Q MON AND THURS IV
     Route: 042
     Dates: start: 20040315, end: 20040318
  4. ASCORBIC ACID [Suspect]
     Indication: METASTATIC MALIGNANT MELANOMA
     Dosage: 1000 MG QD X 5 DAYS IV 1000 MG Q MON AND THURS IV
     Route: 042
     Dates: start: 20040322, end: 20040405
  5. TEMOZOLOMIDE [Suspect]
     Dosage: 380 MG PO QD X5 DAYS
     Dates: start: 20040322, end: 20040326

REACTIONS (12)
  - ASCITES [None]
  - CONFUSIONAL STATE [None]
  - DEHYDRATION [None]
  - DELIRIUM [None]
  - DISEASE PROGRESSION [None]
  - DYSPNOEA [None]
  - LETHARGY [None]
  - MENTAL STATUS CHANGES [None]
  - METASTASES TO CENTRAL NERVOUS SYSTEM [None]
  - NEOPLASM PROGRESSION [None]
  - RENAL FAILURE [None]
  - SOMNOLENCE [None]
